FAERS Safety Report 4600346-8 (Version None)
Quarter: 2005Q1

REPORT INFORMATION
  Report Type: 
  Country: None (occurrence: None)
  Receive Date: 20050303
  Receipt Date: 20050214
  Transmission Date: 20050727
  Serious: Yes (Other)
  Sender: FDA-Public Use
  Company Number: USA030844461

PATIENT
  Age: 88 Year
  Sex: Female
  Weight: 45 kg

DRUGS (7)
  1. FORTEO [Suspect]
     Indication: OSTEOPOROSIS
     Dosage: 20 UG DAY
     Dates: start: 20030201
  2. LASIX [Concomitant]
  3. POTASSIUM CHLORIDE [Concomitant]
  4. CALCIUM CARBONATE [Concomitant]
  5. PROTONIX [Concomitant]
  6. NORVASC [Concomitant]
  7. PREVACID [Concomitant]

REACTIONS (14)
  - ARTHRALGIA [None]
  - ASEPTIC NECROSIS BONE [None]
  - ASTHENIA [None]
  - BACK PAIN [None]
  - BONE PAIN [None]
  - DIZZINESS [None]
  - DYSPNOEA [None]
  - DYSSTASIA [None]
  - FEELING ABNORMAL [None]
  - INFLUENZA [None]
  - INJECTION SITE ERYTHEMA [None]
  - MUSCLE SPASMS [None]
  - MYALGIA [None]
  - PHARMACEUTICAL PRODUCT COMPLAINT [None]
